FAERS Safety Report 25554028 (Version 1)
Quarter: 2025Q3

REPORT INFORMATION
  Report Type: Report from Study
  Country: US (occurrence: US)
  Receive Date: 20250715
  Receipt Date: 20250715
  Transmission Date: 20251020
  Serious: Yes (Death, Other)
  Sender: RANBAXY
  Company Number: US-SUN PHARMACEUTICAL INDUSTRIES LTD-2025R1-516787

PATIENT
  Sex: Male
  Weight: 0.53 kg

DRUGS (6)
  1. EPINEPHRINE [Suspect]
     Active Substance: EPINEPHRINE
     Indication: Capillary leak syndrome
     Route: 065
  2. AMINOPHYLLINE [Suspect]
     Active Substance: AMINOPHYLLINE
     Indication: Capillary leak syndrome
     Route: 065
  3. NOREPINEPHRINE BITARTRATE [Suspect]
     Active Substance: NOREPINEPHRINE BITARTRATE
     Indication: Capillary leak syndrome
     Route: 065
  4. DOBUTAMINE [Suspect]
     Active Substance: DOBUTAMINE HYDROCHLORIDE
     Indication: Capillary leak syndrome
     Route: 065
  5. DOPAMINE [Suspect]
     Active Substance: DOPAMINE HYDROCHLORIDE
     Indication: Capillary leak syndrome
     Route: 065
  6. VASOPRESSIN [Suspect]
     Active Substance: VASOPRESSIN
     Indication: Capillary leak syndrome
     Route: 065

REACTIONS (2)
  - Condition aggravated [Fatal]
  - Respiratory failure [Fatal]
